FAERS Safety Report 7121074-3 (Version None)
Quarter: 2010Q4

REPORT INFORMATION
  Report Type: 
  Country: None (occurrence: None)
  Receive Date: 20101124
  Receipt Date: 20101116
  Transmission Date: 20110411
  Serious: Yes (Other)
  Sender: FDA-Public Use
  Company Number: JP-BRISTOL-MYERS SQUIBB COMPANY-15333909

PATIENT
  Age: 63 Year
  Sex: Male
  Weight: 62 kg

DRUGS (6)
  1. ABILIFY [Suspect]
     Indication: SCHIZOPHRENIA
     Dosage: ORAL SOLUTION 0.1 % 30AUG10-05SEP10:TD:30 DAYS,06SEP10-28SEP10:TD:23 DAYS
     Route: 048
     Dates: start: 20100830, end: 20100928
  2. DEPAKENE [Concomitant]
     Dosage: DEPAKENE R JPN TABS
     Dates: start: 20100519
  3. RISPERDAL [Concomitant]
     Dosage: TAB
     Dates: start: 20100519
  4. AKINETON [Concomitant]
     Dosage: TAB
     Dates: start: 20100519
  5. NORVASC [Concomitant]
     Dosage: TABS
     Dates: start: 20100519
  6. SENNOSIDE [Concomitant]
     Dosage: TABS
     Dates: start: 20100519

REACTIONS (1)
  - ERYTHEMA MULTIFORME [None]
